FAERS Safety Report 4619322-4 (Version None)
Quarter: 2005Q2

REPORT INFORMATION
  Report Type: 
  Country: None (occurrence: None)
  Receive Date: 20050321
  Receipt Date: 20040303
  Transmission Date: 20051028
  Serious: Yes (Other)
  Sender: FDA-Public Use
  Company Number: 2004-03-0240

PATIENT
  Sex: Male

DRUGS (4)
  1. PEG-INTRON [Suspect]
     Dosage: ^DOUBLE DOSE^ SUBCUTANEOU; ^SINGLE DOSE^ SUBCUTANEOUS
     Route: 058
     Dates: end: 20031001
  2. PEG-INTRON [Suspect]
     Dosage: ^DOUBLE DOSE^ SUBCUTANEOU; ^SINGLE DOSE^ SUBCUTANEOUS
     Route: 058
  3. REBETOL [Suspect]
     Dosage: ^DOUBLE DOSE^ ORAL; ^SINGLE DOSE^ ORAL
     Route: 048
     Dates: end: 20031001
  4. REBETOL [Suspect]
     Dosage: ^DOUBLE DOSE^ ORAL; ^SINGLE DOSE^ ORAL
     Route: 048

REACTIONS (4)
  - ALOPECIA [None]
  - BLINDNESS [None]
  - DIARRHOEA [None]
  - MUSCLE SPASMS [None]
